FAERS Safety Report 6216044-3 (Version None)
Quarter: 2009Q2

REPORT INFORMATION
  Report Type: 
  Country: None (occurrence: None)
  Receive Date: 20090605
  Receipt Date: 20090527
  Transmission Date: 20091009
  Serious: Yes (Other)
  Sender: FDA-Public Use
  Company Number: PHEH2009US04190

PATIENT
  Sex: Female

DRUGS (6)
  1. DICLOFENAC SODIUM [Suspect]
     Dosage: UNK
     Route: 048
  2. VOLTAREN [Suspect]
     Indication: SPONDYLITIS
  3. VIOXX [Suspect]
     Dosage: UNK
  4. FLEXAR [Suspect]
  5. NAPROXEN [Suspect]
  6. CELEBREX [Suspect]

REACTIONS (4)
  - DRUG INEFFECTIVE [None]
  - SPINAL CORPECTOMY [None]
  - SPINAL OSTEOARTHRITIS [None]
  - URINARY TRACT INFECTION [None]
